FAERS Safety Report 24224263 (Version 1)
Quarter: 2024Q3

REPORT INFORMATION
  Report Type: Spontaneous
  Country: US (occurrence: None)
  Receive Date: 20240818
  Receipt Date: 20240818
  Transmission Date: 20241016
  Serious: No
  Sender: Public
  Company Number: None

PATIENT
  Age: 26 Year
  Sex: Female
  Weight: 62.55 kg

DRUGS (4)
  1. CAFFEINE\CETIRIZINE\MELATONIN\MINOXIDIL\SPIRONOLACTONE [Suspect]
     Active Substance: CAFFEINE\CETIRIZINE\MELATONIN\MINOXIDIL\SPIRONOLACTONE
     Indication: Androgenetic alopecia
     Dosage: OTHER QUANTITY : 5 ROLLS TO AREA?FREQUENCY : AT BEDTIME?
     Route: 061
     Dates: start: 20240723, end: 20240724
  2. PRISTIQ EXTENDED-RELEASE [Concomitant]
     Active Substance: DESVENLAFAXINE SUCCINATE
  3. Nikki BC pill [Concomitant]
  4. NUTRAFOL [Concomitant]

REACTIONS (3)
  - Rash [None]
  - Pruritus [None]
  - Skin swelling [None]

NARRATIVE: CASE EVENT DATE: 20240726
